FAERS Safety Report 12493334 (Version 1)
Quarter: 2016Q2

REPORT INFORMATION
  Report Type: Report from Study
  Country: GB (occurrence: GB)
  Receive Date: 20160623
  Receipt Date: 20160623
  Transmission Date: 20160815
  Serious: Yes (Hospitalization)
  Sender: FDA-Public Use
  Company Number: GB-PFIZER INC-2015196040

PATIENT
  Age: 68 Year
  Sex: Male
  Weight: 67 kg

DRUGS (19)
  1. RANITIDINE. [Concomitant]
     Active Substance: RANITIDINE
     Dosage: 150 MG, 2X/DAY
     Dates: start: 20150528, end: 20150602
  2. RANITIDINE. [Concomitant]
     Active Substance: RANITIDINE
     Dosage: 150 MG, 2X/DAY
     Dates: start: 20150606
  3. FUROSEMIDE. [Concomitant]
     Active Substance: FUROSEMIDE
     Indication: DIURETIC THERAPY
     Dosage: 40 MG, 1X/DAY
     Route: 048
     Dates: start: 20150526, end: 20150606
  4. CHLORPHENAMINE [Concomitant]
     Active Substance: CHLORPHENIRAMINE MALEATE
     Indication: PREMEDICATION
     Dosage: 10 MG, SINGLE (ONCE)
     Route: 042
     Dates: start: 20150528, end: 20150528
  5. DEXAMETHASONE. [Concomitant]
     Active Substance: DEXAMETHASONE
     Dosage: 8 MG, SINGLE (ONCE)
     Route: 042
     Dates: start: 20150528, end: 20150528
  6. CYCLOPHOSPHAMIDE. [Suspect]
     Active Substance: CYCLOPHOSPHAMIDE
     Indication: DIFFUSE LARGE B-CELL LYMPHOMA
     Dosage: 1400 MG, SINGLE (ONCE)
     Route: 042
     Dates: start: 20150528, end: 20150528
  7. LENOGRASTIM [Concomitant]
     Active Substance: LENOGRASTIM
     Dosage: 263 ?G, 1X/DAY
     Route: 058
     Dates: start: 20150605, end: 20150607
  8. RAMIPRIL. [Concomitant]
     Active Substance: RAMIPRIL
     Indication: CARDIAC DISORDER
     Dosage: 1.25 MG, 1X/DAY
     Route: 048
     Dates: start: 20150518, end: 20150606
  9. PARACETAMOL [Concomitant]
     Active Substance: ACETAMINOPHEN
     Indication: PREMEDICATION
     Dosage: 1000 MG, SINGLE (ONCE)
     Route: 048
     Dates: start: 20150528, end: 20150528
  10. VINCRISTINE SULFATE. [Suspect]
     Active Substance: VINCRISTINE SULFATE
     Indication: DIFFUSE LARGE B-CELL LYMPHOMA
     Dosage: 2 MG, SINGLE (ONCE)
     Route: 042
     Dates: start: 20150528, end: 20150528
  11. GRANISETRON [Concomitant]
     Active Substance: GRANISETRON
     Indication: PROPHYLAXIS OF NAUSEA AND VOMITING
     Dosage: 1 MG, SINGLE (ONCE)
     Route: 042
     Dates: start: 20150528, end: 20150528
  12. BISOPROLOL [Concomitant]
     Active Substance: BISOPROLOL
     Indication: CARDIAC DISORDER
     Dosage: 1.25 MG, 1X/DAY
     Route: 048
     Dates: start: 20150518
  13. RITUXIMAB [Concomitant]
     Active Substance: RITUXIMAB
     Indication: DIFFUSE LARGE B-CELL LYMPHOMA
     Dosage: 100 MG, SINGLE (ONCE)
     Route: 042
     Dates: start: 20150528, end: 20150528
  14. ALLOPURINOL. [Concomitant]
     Active Substance: ALLOPURINOL
     Dosage: 300 MG, 1X/DAY
     Route: 048
     Dates: start: 20150522
  15. LENOGRASTIM [Concomitant]
     Active Substance: LENOGRASTIM
     Dosage: 263 ?G, 1X/DAY
     Route: 058
     Dates: start: 20150531, end: 20150531
  16. ADCAL D3 [Suspect]
     Active Substance: CALCIUM CARBONATE\CHOLECALCIFEROL
     Indication: SUPPLEMENTATION THERAPY
     Dosage: 1.5 G, 2X/DAY
     Route: 048
     Dates: start: 20150607
  17. INOTUZUMAB OZOGAMICIN [Suspect]
     Active Substance: INOTUZUMAB OZOGAMICIN
     Indication: DIFFUSE LARGE B-CELL LYMPHOMA
     Dosage: 1.5 MG, SINGLE (ONCE)
     Route: 042
     Dates: start: 20150529
  18. HYDROCORTISONE. [Concomitant]
     Active Substance: HYDROCORTISONE
     Indication: PREMEDICATION
     Dosage: 100 MG, SINGLE (ONCE)
     Route: 042
     Dates: start: 20150528, end: 20150528
  19. PREDNISOLONE. [Concomitant]
     Active Substance: PREDNISOLONE
     Dosage: 100 MG, 1X/DAY FOR 5 DAYS
     Route: 048
     Dates: start: 20150528, end: 20150601

REACTIONS (5)
  - Febrile neutropenia [Recovered/Resolved with Sequelae]
  - Hypokalaemia [Recovered/Resolved]
  - Hyponatraemia [Recovered/Resolved]
  - Pleural effusion [Recovered/Resolved]
  - Dehydration [Recovered/Resolved]

NARRATIVE: CASE EVENT DATE: 20150606
